FAERS Safety Report 8390438 (Version 2)
Quarter: 2013Q3

REPORT INFORMATION
  Report Type: Spontaneous
  Country: US (occurrence: US)
  Receive Date: 20120203
  Receipt Date: 20130809
  Transmission Date: 20140515
  Serious: Yes (Other)
  Sender: FDA-Public Use
  Company Number: US-ASTRAZENECA-2012SE05474

PATIENT
  Age: 71 Year
  Sex: Female
  Weight: 95.3 kg

DRUGS (12)
  1. PRILOSEC OTC [Suspect]
     Route: 048
  2. NEXIUM [Suspect]
     Indication: PROPHYLAXIS AGAINST GASTROINTESTINAL ULCER
     Route: 048
  3. NEXIUM [Suspect]
     Indication: GASTRIC ULCER
     Route: 048
  4. NEXIUM [Suspect]
     Indication: PROPHYLAXIS AGAINST GASTROINTESTINAL ULCER
     Route: 048
     Dates: start: 2011, end: 20130801
  5. NEXIUM [Suspect]
     Indication: GASTRIC ULCER
     Route: 048
     Dates: start: 2011, end: 20130801
  6. NEXIUM [Suspect]
     Indication: PROPHYLAXIS AGAINST GASTROINTESTINAL ULCER
     Route: 048
  7. NEXIUM [Suspect]
     Indication: GASTRIC ULCER
     Route: 048
  8. NOVOLIN N [Concomitant]
  9. HUMALOG [Concomitant]
  10. VASOTEC [Concomitant]
     Indication: HYPERTENSION
     Route: 048
     Dates: start: 2000
  11. PROZAC [Concomitant]
  12. ATIVAN [Concomitant]

REACTIONS (15)
  - Anaemia [Unknown]
  - Gastric haemorrhage [Unknown]
  - Gastric antral vascular ectasia [Unknown]
  - Bleeding varicose vein [Unknown]
  - Fatigue [Unknown]
  - Asthenia [Unknown]
  - Breast mass [Unknown]
  - Rectocele [Unknown]
  - Cystocele [Unknown]
  - Cataract [Unknown]
  - Food craving [Unknown]
  - Abdominal distension [Unknown]
  - Constipation [Unknown]
  - Drug dose omission [Recovered/Resolved]
  - Off label use [Unknown]
